FAERS Safety Report 6895338-2 (Version None)
Quarter: 2010Q3

REPORT INFORMATION
  Report Type: 
  Country: None (occurrence: None)
  Receive Date: 20100802
  Receipt Date: 20100721
  Transmission Date: 20110219
  Serious: Yes (Hospitalization)
  Sender: FDA-Public Use
  Company Number: NL-AMGEN-QUU397437

PATIENT
  Age: 33 Year
  Sex: Male

DRUGS (8)
  1. ENBREL [Suspect]
     Indication: ANKYLOSING SPONDYLITIS
     Route: 058
     Dates: start: 20091201, end: 20100127
  2. ENBREL [Suspect]
     Route: 058
     Dates: start: 20100204, end: 20100306
  3. ENBREL [Suspect]
     Route: 058
     Dates: start: 20100410
  4. PRILOSEC [Concomitant]
  5. SIMVASTATIN [Concomitant]
  6. ARCOXIA [Concomitant]
  7. PARACETAMOL [Concomitant]
  8. LISINOPRIL [Concomitant]

REACTIONS (7)
  - BACK PAIN [None]
  - INFLUENZA LIKE ILLNESS [None]
  - INJECTION SITE ERYTHEMA [None]
  - INJECTION SITE SWELLING [None]
  - INTERVERTEBRAL DISC OPERATION [None]
  - NASOPHARYNGITIS [None]
  - NEURALGIA [None]
